FAERS Safety Report 10536045 (Version 1)
Quarter: 2014Q4

REPORT INFORMATION
  Report Type: Spontaneous
  Country: US (occurrence: US)
  Receive Date: 20141022
  Receipt Date: 20141022
  Transmission Date: 20150529
  Serious: No
  Sender: FDA-Public Use
  Company Number: US-RECKITT BENCKISER PHARMACEUTICAL, INC-RB-62496-2014

PATIENT

DRUGS (2)
  1. SUBOXONE [Suspect]
     Active Substance: BUPRENORPHINE HYDROCHLORIDE\NALOXONE HYDROCHLORIDE
     Indication: DRUG DEPENDENCE
     Dosage: SUBOXONE FILM; CUT AND TOOK 4 MG ONCE ON THE DAY PRIOR TO REPORT
     Route: 060
     Dates: start: 20140105
  2. HEROIN [Suspect]
     Active Substance: DIACETYLMORPHINE
     Indication: PRODUCT USED FOR UNKNOWN INDICATION
     Dosage: UNKNOWN DOSING DETAILS
     Route: 065
     Dates: start: 20140106

REACTIONS (4)
  - Off label use [Unknown]
  - Drug abuse [Unknown]
  - Wrong technique in drug usage process [Unknown]
  - Intentional underdose [Unknown]

NARRATIVE: CASE EVENT DATE: 20140105
